FAERS Safety Report 12539111 (Version 1)
Quarter: 2016Q3

REPORT INFORMATION
  Report Type: Spontaneous
  Country: US (occurrence: None)
  Receive Date: 20160707
  Receipt Date: 20160707
  Transmission Date: 20161109
  Serious: Yes (Life-Threatening, Hospitalization, Other)
  Sender: FDA-Public Use
  Company Number: None

PATIENT
  Age: 55 Year
  Sex: Male
  Weight: 127.01 kg

DRUGS (7)
  1. OXYCODONE [Concomitant]
     Active Substance: OXYCODONE
  2. BLOOD PRESSURE MED [Concomitant]
  3. INJECTION CORTISONE, 2 G [Suspect]
     Active Substance: CORTISONE\HYDROCORTISONE
     Indication: ARTHRITIS
     Route: 058
     Dates: start: 20130301, end: 20141127
  4. ASPIRIN. [Concomitant]
     Active Substance: ASPIRIN
  5. PROSTATE MED [Concomitant]
  6. CHRONIC PAIN MED [Concomitant]
  7. MORPHINE SULFATE. [Concomitant]
     Active Substance: MORPHINE SULFATE

REACTIONS (1)
  - Overdose [None]

NARRATIVE: CASE EVENT DATE: 20141204
